FAERS Safety Report 15978361 (Version 3)
Quarter: 2020Q1

REPORT INFORMATION
  Report Type: Report from Study
  Country: None (occurrence: US)
  Receive Date: 20190219
  Receipt Date: 20200207
  Transmission Date: 20200409
  Serious: Yes (Hospitalization, Other)
  Sender: FDA-Public Use
  Company Number: US-ABBVIE-18K-163-2588957-00

PATIENT
  Age: 69 Year
  Sex: Male
  Weight: 111.68 kg

DRUGS (2)
  1. HUMIRA [Suspect]
     Active Substance: ADALIMUMAB
     Route: 058
     Dates: start: 20190401, end: 20190630
  2. HUMIRA [Suspect]
     Active Substance: ADALIMUMAB
     Indication: HIDRADENITIS
     Route: 058
     Dates: start: 20180319, end: 20190325

REACTIONS (36)
  - Loss of consciousness [Unknown]
  - Blood glucose decreased [Unknown]
  - Blood pressure decreased [Unknown]
  - Musculoskeletal chest pain [Unknown]
  - Muscle injury [Unknown]
  - Haemoglobin decreased [Unknown]
  - Pulmonary oedema [Unknown]
  - Disturbance in attention [Unknown]
  - Fall [Unknown]
  - Renal impairment [Recovering/Resolving]
  - Vomiting [Unknown]
  - Loss of consciousness [Unknown]
  - Pericardial effusion [Unknown]
  - Oedema peripheral [Unknown]
  - Respiratory disorder [Unknown]
  - Myocardial infarction [Recovered/Resolved]
  - Blood glucose abnormal [Unknown]
  - Dizziness [Unknown]
  - Haemorrhage [Recovering/Resolving]
  - Fatigue [Unknown]
  - Vomiting [Recovered/Resolved]
  - Dyspnoea [Unknown]
  - Unresponsive to stimuli [Unknown]
  - Fall [Recovered/Resolved]
  - Musculoskeletal chest pain [Unknown]
  - Anaemia [Recovering/Resolving]
  - Sepsis [Unknown]
  - Amnesia [Unknown]
  - Fall [Recovered/Resolved]
  - Hidradenitis [Recovered/Resolved]
  - Diarrhoea [Recovering/Resolving]
  - Headache [Unknown]
  - Diarrhoea [Recovered/Resolved]
  - Drug ineffective [Unknown]
  - Diabetes mellitus [Unknown]
  - Fall [Recovered/Resolved]

NARRATIVE: CASE EVENT DATE: 201808
